FAERS Safety Report 20543731 (Version 1)
Quarter: 2022Q1

REPORT INFORMATION
  Report Type: Spontaneous
  Country: GB (occurrence: GB)
  Receive Date: 20220303
  Receipt Date: 20220303
  Transmission Date: 20220424
  Serious: Yes (Other)
  Sender: FDA-Public Use
  Company Number: GB-Gedeon Richter Plc.-2022_GR_000411

PATIENT
  Sex: Female

DRUGS (2)
  1. MORPHINE [Suspect]
     Active Substance: MORPHINE
     Indication: Product used for unknown indication
     Dosage: UNK
     Route: 065
  2. TERIPARATIDE [Suspect]
     Active Substance: TERIPARATIDE
     Indication: Osteoporosis
     Dosage: 20MCG DAILY
     Route: 058
     Dates: start: 20211220

REACTIONS (5)
  - Hallucination [Unknown]
  - Pain [Unknown]
  - Nausea [Unknown]
  - Vertigo [Unknown]
  - Back pain [Unknown]
